FAERS Safety Report 7433636-4 (Version None)
Quarter: 2011Q2

REPORT INFORMATION
  Report Type: 
  Country: None (occurrence: None)
  Receive Date: 20110422
  Receipt Date: 20110414
  Transmission Date: 20111010
  Serious: Yes (Other)
  Sender: FDA-Public Use
  Company Number: FR-MERCK-1104FRA00079

PATIENT
  Age: 59 Year
  Sex: Female

DRUGS (13)
  1. ONDANSETRON HYDROCHLORIDE [Suspect]
     Route: 042
     Dates: start: 20110124, end: 20110124
  2. EMEND [Suspect]
     Route: 048
     Dates: start: 20110125, end: 20110126
  3. MESNA [Suspect]
     Route: 042
     Dates: start: 20110124, end: 20110124
  4. ACETAMINOPHEN [Concomitant]
     Route: 065
  5. CYCLOPHOSPHAMIDE [Suspect]
     Indication: WEGENER'S GRANULOMATOSIS
     Route: 042
     Dates: start: 20110124, end: 20110124
  6. NICARDIPINE HYDROCHLORIDE [Concomitant]
     Route: 065
  7. CALCIUM CARBONATE AND CHOLECALCIFEROL [Concomitant]
     Route: 065
  8. EMEND [Suspect]
     Route: 048
     Dates: start: 20110124, end: 20110124
  9. MESNA [Suspect]
     Route: 048
     Dates: start: 20110124, end: 20110124
  10. VALACYCLOVIR HYDROCHLORIDE [Concomitant]
     Route: 065
  11. POTASSIUM CHLORIDE [Concomitant]
     Route: 065
  12. PREDNISONE [Concomitant]
     Route: 065
  13. SULFAMETHOXAZOLE AND TRIMETHOPRIM [Concomitant]
     Route: 065

REACTIONS (3)
  - HYPOTENSION [None]
  - HYPERTENSION [None]
  - HYPOTHERMIA [None]
